FAERS Safety Report 4686178-3 (Version None)
Quarter: 2005Q2

REPORT INFORMATION
  Report Type: 
  Country: None (occurrence: None)
  Receive Date: 20050609
  Receipt Date: 20050601
  Transmission Date: 20051028
  Serious: Yes (Hospitalization)
  Sender: FDA-Public Use
  Company Number: DE-BOEHRINGER INGELHEIM PHARMACEUTICALS, INC.-2005-BP-09401YA

PATIENT
  Sex: Male

DRUGS (1)
  1. OMNIC CAPSULES [Suspect]
     Route: 048
     Dates: start: 20050513, end: 20050513

REACTIONS (4)
  - CONTUSION [None]
  - FALL [None]
  - LACERATION [None]
  - LOSS OF CONSCIOUSNESS [None]
